FAERS Safety Report 6535766-8 (Version None)
Quarter: 2010Q1

REPORT INFORMATION
  Report Type: 
  Country: None (occurrence: None)
  Receive Date: 20100113
  Receipt Date: 20091207
  Transmission Date: 20100710
  Serious: Yes (Life-Threatening)
  Sender: FDA-Public Use
  Company Number: FR-SANOFI-AVENTIS-2009SA007775

PATIENT
  Age: 72 Year

DRUGS (6)
  1. OXALIPLATIN [Suspect]
     Indication: COLON CANCER
     Route: 042
     Dates: start: 20070710, end: 20070710
  2. OXALIPLATIN [Suspect]
     Route: 042
     Dates: start: 20071218, end: 20071218
  3. CETUXIMAB [Suspect]
     Indication: COLON CANCER
     Route: 042
     Dates: start: 20070710, end: 20070710
  4. CETUXIMAB [Suspect]
     Route: 042
     Dates: start: 20080115, end: 20080115
  5. FLUOROURACIL [Suspect]
     Indication: COLON CANCER
     Route: 042
     Dates: start: 20070710, end: 20070710
  6. FLUOROURACIL [Suspect]
     Route: 042
     Dates: start: 20071218, end: 20071218

REACTIONS (1)
  - ENDOCARDITIS BACTERIAL [None]
